FAERS Safety Report 15413508 (Version 2)
Quarter: 2018Q3

REPORT INFORMATION
  Report Type: Spontaneous
  Country: JP (occurrence: JP)
  Receive Date: 20180921
  Receipt Date: 20180926
  Transmission Date: 20181010
  Serious: Yes (Other)
  Sender: FDA-Public Use
  Company Number: JP-JNJFOC-20180922891

PATIENT
  Sex: Male

DRUGS (1)
  1. ITRIZOLE [Suspect]
     Active Substance: ITRACONAZOLE
     Indication: CANDIDA PNEUMONIA
     Route: 041

REACTIONS (1)
  - Gastrointestinal haemorrhage [Unknown]
